FAERS Safety Report 8570493-7 (Version None)
Quarter: 2012Q3

REPORT INFORMATION
  Report Type: 
  Country: None (occurrence: None)
  Receive Date: 20120803
  Receipt Date: 20120723
  Transmission Date: 20120928
  Serious: No
  Sender: FDA-Public Use
  Company Number: US-ASTRAZENECA-2012SE51785

PATIENT
  Age: 51 Year
  Sex: Male
  Weight: 79.4 kg

DRUGS (12)
  1. SIMVASTATIN [Concomitant]
     Indication: BLOOD CHOLESTEROL INCREASED
  2. NEXIUM [Suspect]
     Route: 048
     Dates: start: 20120501
  3. ZOLOFT [Concomitant]
     Indication: DEPRESSION
  4. NEXIUM [Suspect]
     Indication: GASTROOESOPHAGEAL REFLUX DISEASE
     Route: 048
     Dates: start: 20100101, end: 20120401
  5. NEXIUM [Suspect]
     Indication: ACQUIRED OESOPHAGEAL WEB
     Route: 048
     Dates: start: 20100101, end: 20120401
  6. NEXIUM [Suspect]
     Route: 048
     Dates: start: 20120401, end: 20120501
  7. NEXIUM [Suspect]
     Route: 048
     Dates: start: 20120501
  8. NEXIUM [Suspect]
     Indication: EROSIVE OESOPHAGITIS
     Route: 048
     Dates: start: 20100101, end: 20120401
  9. NEXIUM [Suspect]
     Route: 048
     Dates: start: 20120501
  10. NEXIUM [Suspect]
     Route: 048
     Dates: start: 20120401, end: 20120501
  11. CLARITIN [Concomitant]
     Indication: SEASONAL ALLERGY
  12. NEXIUM [Suspect]
     Route: 048
     Dates: start: 20120401, end: 20120501

REACTIONS (6)
  - DRUG DOSE OMISSION [None]
  - EROSIVE OESOPHAGITIS [None]
  - INSOMNIA [None]
  - OFF LABEL USE [None]
  - ACQUIRED OESOPHAGEAL WEB [None]
  - DYSPEPSIA [None]
